FAERS Safety Report 6255025-0 (Version None)
Quarter: 2009Q3

REPORT INFORMATION
  Report Type: 
  Country: None (occurrence: None)
  Receive Date: 20090702
  Receipt Date: 20090319
  Transmission Date: 20100115
  Serious: Yes (Hospitalization, Disabling, Other)
  Sender: FDA-Public Use
  Company Number: US-MERCK-0903USA04209

PATIENT
  Age: 57 Year
  Sex: Female

DRUGS (2)
  1. FOSAMAX [Suspect]
     Indication: OSTEOPOROSIS
     Route: 048
     Dates: start: 20000101, end: 20090101
  2. METOPROLOL [Concomitant]
     Route: 065

REACTIONS (5)
  - ERYTHEMA [None]
  - ORAL CAVITY FISTULA [None]
  - OSTEONECROSIS [None]
  - PURULENT DISCHARGE [None]
  - SKIN INDURATION [None]
